FAERS Safety Report 7691994-X (Version None)
Quarter: 2011Q3

REPORT INFORMATION
  Report Type: 
  Country: None (occurrence: None)
  Receive Date: 20110818
  Receipt Date: 20110810
  Transmission Date: 20111222
  Serious: Yes (Other)
  Sender: FDA-Public Use
  Company Number: GB-BAYER-2011-073082

PATIENT
  Sex: Female

DRUGS (1)
  1. MIRENA [Suspect]
     Dosage: UNK
     Route: 015
     Dates: start: 20110712

REACTIONS (4)
  - POST PROCEDURAL HAEMORRHAGE [None]
  - BACK PAIN [None]
  - VAGINAL HAEMORRHAGE [None]
  - ABDOMINAL DISTENSION [None]
